FAERS Safety Report 6917441-0 (Version None)
Quarter: 2010Q3

REPORT INFORMATION
  Report Type: 
  Country: None (occurrence: None)
  Receive Date: 20100810
  Receipt Date: 20100805
  Transmission Date: 20110219
  Serious: Yes (Death, Other)
  Sender: FDA-Public Use
  Company Number: PHHO2010FR11893

PATIENT
  Sex: Female
  Weight: 82 kg

DRUGS (7)
  1. STI571/CGP57148B T35717+TAB [Suspect]
     Indication: ACUTE LYMPHOCYTIC LEUKAEMIA
     Dosage: UNK
     Route: 048
     Dates: start: 20100722
  2. KARDEGIC [Concomitant]
  3. HYPER-CVAD [Concomitant]
  4. TAHOR [Concomitant]
  5. PERINDOPRIL ERBUMINE [Concomitant]
  6. LASIX [Concomitant]
  7. NOXAFIL [Concomitant]

REACTIONS (3)
  - BACTERIAL INFECTION [None]
  - RENAL FAILURE [None]
  - SEPTIC SHOCK [None]
